FAERS Safety Report 8151926-7 (Version None)
Quarter: 2012Q1

REPORT INFORMATION
  Report Type: 
  Country: None (occurrence: None)
  Receive Date: 20120221
  Receipt Date: 20120215
  Transmission Date: 20120608
  Serious: No
  Sender: FDA-Public Use
  Company Number: US-PFIZER INC-2012042081

PATIENT
  Sex: Male
  Weight: 79 kg

DRUGS (1)
  1. SUTENT [Suspect]
     Indication: RENAL CANCER METASTATIC
     Dosage: 50 MG, UNK (1 CAPSULE EVERY DAY FOR 4 WEEKS AND 2 WEEKS OFF)
     Route: 048
     Dates: start: 20101201

REACTIONS (3)
  - DRY SKIN [None]
  - DRY MOUTH [None]
  - DYSGEUSIA [None]
